FAERS Safety Report 16990389 (Version 1)
Quarter: 2019Q4

REPORT INFORMATION
  Report Type: Spontaneous
  Country: US (occurrence: US)
  Receive Date: 20190921
  Receipt Date: 20190921
  Transmission Date: 20200122
  Serious: No
  Sender: FDA-Public Use
  Company Number: None

PATIENT
  Age: 60 Year
  Sex: Male

DRUGS (1)
  1. TACROLIMUS CAP 0.5 [Suspect]
     Active Substance: TACROLIMUS
     Indication: STEM CELL TRANSPLANT
     Dosage: ?          OTHER DOSE:0.5;?
     Route: 048
     Dates: start: 201603

REACTIONS (2)
  - Product availability issue [None]
  - Intentional product use issue [None]

NARRATIVE: CASE EVENT DATE: 20190921
